FAERS Safety Report 4826313-7 (Version None)
Quarter: 2005Q4

REPORT INFORMATION
  Report Type: 
  Country: None (occurrence: None)
  Receive Date: 20051109
  Receipt Date: 20051027
  Transmission Date: 20060501
  Serious: Yes (Life-Threatening, Other)
  Sender: FDA-Public Use
  Company Number: 2005132377

PATIENT
  Age: 64 Year
  Sex: Male
  Weight: 110.0426 kg

DRUGS (27)
  1. HEPARIN SODIUM [Suspect]
     Indication: CORONARY ARTERY SURGERY
     Dosage: TOTAL DOSE - 39,900 UNITS, INTRAVENOUS
     Route: 042
     Dates: start: 20050307, end: 20050308
  2. ASPIRIN [Suspect]
     Indication: PROPHYLAXIS
     Dosage: 325 MG (1 IN 1 D), ORAL
     Route: 048
     Dates: start: 20050304, end: 20050306
  3. NICARDIPINE HCL [Suspect]
     Indication: PROCEDURAL HYPERTENSION
     Dosage: 0.416 MG , INTRAVENOUS
     Route: 042
     Dates: start: 20050308, end: 20050308
  4. LOVENOX [Suspect]
     Indication: THROMBOSIS PROPHYLAXIS
     Dosage: 240 MG (120 MG, 1 IN 12 HR), SUBCUTANEOUS
     Route: 058
     Dates: start: 20050304, end: 20050306
  5. LOPRESSOR [Concomitant]
  6. LORTAB [Concomitant]
  7. ALUMINUM HYDROXIDE AND MAGNESIUM TRISILICATE [Concomitant]
  8. IMDUR [Concomitant]
  9. NTG (GLYCERYL TRINITRATE) [Concomitant]
  10. MUCOMYST [Concomitant]
  11. BREVIBLOC [Concomitant]
  12. MUPIROCIN (MUPIROCIN) [Concomitant]
  13. MORPHINE [Concomitant]
  14. ZYLOPRIM [Concomitant]
  15. INTEGRILIN [Concomitant]
  16. LASIX [Concomitant]
  17. SODIUM BICARBONATE IN PLASTIC CONTAINER [Concomitant]
  18. ANCEF [Concomitant]
  19. POTASSIUM CHLORIDE [Concomitant]
  20. INSULIN [Concomitant]
  21. SUFENTA [Concomitant]
  22. VERSED [Concomitant]
  23. VECURONIUM (VECURONIUM) [Concomitant]
  24. SUCCINYLCHOLINE CHLORIDE [Concomitant]
  25. LIDOCAINE HCL INJ [Concomitant]
  26. MANNITOL [Concomitant]
  27. AMICAR [Concomitant]

REACTIONS (5)
  - BLOOD PRESSURE SYSTOLIC INCREASED [None]
  - BLOODY DISCHARGE [None]
  - HEART RATE INCREASED [None]
  - POST PROCEDURAL COMPLICATION [None]
  - POST PROCEDURAL HAEMATOMA [None]
